FAERS Safety Report 5848454-8 (Version None)
Quarter: 2008Q3

REPORT INFORMATION
  Report Type: 
  Country: None (occurrence: None)
  Receive Date: 20080818
  Receipt Date: 20080511
  Transmission Date: 20090109
  Serious: No
  Sender: FDA-Public Use
  Company Number: US-BAYER-200822981NA

PATIENT
  Sex: Female

DRUGS (2)
  1. BETASERON [Suspect]
  2. BETASERON [Suspect]
     Dates: start: 20080101

REACTIONS (3)
  - MYALGIA [None]
  - PAIN IN EXTREMITY [None]
  - RASH MACULAR [None]
